FAERS Safety Report 23955869 (Version 1)
Quarter: 2024Q2

REPORT INFORMATION
  Report Type: Spontaneous
  Country: US (occurrence: US)
  Receive Date: 20240610
  Receipt Date: 20240610
  Transmission Date: 20240715
  Serious: Yes (Hospitalization)
  Sender: FDA-Public Use
  Company Number: US-MYLANLABS-2024M1051243

PATIENT
  Age: 64 Year
  Sex: Male

DRUGS (5)
  1. ATENOLOL [Suspect]
     Active Substance: ATENOLOL
     Indication: Hypertension
     Dosage: 25 MILLIGRAM, QD
     Route: 065
  2. PEMBROLIZUMAB [Concomitant]
     Active Substance: PEMBROLIZUMAB
     Indication: Phaeochromocytoma
     Dosage: UNK
     Route: 042
  3. PEMBROLIZUMAB [Concomitant]
     Active Substance: PEMBROLIZUMAB
     Indication: Metastasis
  4. AXITINIB [Concomitant]
     Active Substance: AXITINIB
     Indication: Phaeochromocytoma
     Dosage: UNK
     Route: 048
  5. AXITINIB [Concomitant]
     Active Substance: AXITINIB
     Indication: Metastasis

REACTIONS (1)
  - Drug ineffective [Unknown]
